FAERS Safety Report 8118535-7 (Version None)
Quarter: 2012Q1

REPORT INFORMATION
  Report Type: 
  Country: None (occurrence: None)
  Receive Date: 20120207
  Receipt Date: 20120130
  Transmission Date: 20120608
  Serious: Yes (Hospitalization)
  Sender: FDA-Public Use
  Company Number: RU-AMGEN-RUSCT2012003920

PATIENT
  Age: 72 Year
  Sex: Male

DRUGS (8)
  1. ASPIRIN [Concomitant]
     Dosage: UNK
     Dates: start: 20091101
  2. CIPROFLOXACIN [Concomitant]
     Dosage: UNK
     Dates: start: 20111010, end: 20111001
  3. NIMESULIDE [Concomitant]
     Dosage: 200 MG, UNK
     Route: 048
     Dates: start: 20100318
  4. CINACALCET HYDROCHLORIDE [Suspect]
     Indication: HYPERPARATHYROIDISM SECONDARY
     Route: 048
     Dates: start: 20110907
  5. PLACEBO [Suspect]
     Indication: HYPERPARATHYROIDISM SECONDARY
     Route: 048
     Dates: start: 20110907
  6. LEVODOPA BENSERAZIDE [Concomitant]
     Dosage: 200 MG, QD
     Route: 048
     Dates: start: 20111130
  7. AMIODARONE HCL [Concomitant]
     Dosage: 200 MG, QD
     Route: 048
     Dates: start: 20091130
  8. DETRALEX [Concomitant]
     Dosage: 450 MG, BID
     Route: 048
     Dates: start: 20091130

REACTIONS (2)
  - FEMORAL NECK FRACTURE [None]
  - PNEUMONIA [None]
